FAERS Safety Report 4971260-3 (Version None)
Quarter: 2006Q2

REPORT INFORMATION
  Report Type: 
  Country: None (occurrence: None)
  Receive Date: 20060413
  Receipt Date: 20060303
  Transmission Date: 20061013
  Serious: Yes (Life-Threatening, Hospitalization)
  Sender: FDA-Public Use
  Company Number: DE-MERCK-0603DEU00023

PATIENT
  Age: 72 Year
  Sex: Male
  Weight: 70 kg

DRUGS (6)
  1. ZETIA [Suspect]
     Indication: HYPERLIPIDAEMIA
     Route: 048
     Dates: start: 20030123, end: 20051018
  2. PHENPROCOUMON [Concomitant]
     Route: 048
     Dates: start: 20030123
  3. BENAZEPRIL HYDROCHLORIDE [Concomitant]
     Indication: CARDIAC FAILURE CONGESTIVE
     Route: 048
     Dates: start: 20030123
  4. CARVEDILOL [Concomitant]
     Route: 048
     Dates: start: 20030123
  5. ALLOPURINOL [Concomitant]
     Indication: BLOOD URIC ACID INCREASED
     Route: 048
     Dates: start: 20030123
  6. MAGNESIUM ASPARTATE AND POTASSIUM ASPARTATE [Concomitant]
     Indication: ARRHYTHMIA
     Route: 048
     Dates: start: 20030123

REACTIONS (1)
  - PANCREATIC CARCINOMA METASTATIC [None]
